FAERS Safety Report 4700175-0 (Version None)
Quarter: 2005Q2

REPORT INFORMATION
  Report Type: 
  Country: None (occurrence: None)
  Receive Date: 20050624
  Receipt Date: 20050624
  Transmission Date: 20051028
  Serious: Yes (Life-Threatening, Disabling, Congenital Anomaly)
  Sender: FDA-Public Use
  Company Number: None

PATIENT
  Age: 40 Year
  Sex: Female
  Weight: 80.7403 kg

DRUGS (3)
  1. SEROQUEL [Suspect]
     Indication: BIPOLAR DISORDER
     Dosage: 400    1 AT NIGHT   ORAL
     Route: 048
     Dates: start: 20030101, end: 20050610
  2. SEROQUEL [Suspect]
     Indication: BIPOLAR I DISORDER
     Dosage: 400    1 AT NIGHT   ORAL
     Route: 048
     Dates: start: 20030101, end: 20050610
  3. SEROQUEL [Suspect]
     Indication: POST-TRAUMATIC STRESS DISORDER
     Dosage: 400    1 AT NIGHT   ORAL
     Route: 048
     Dates: start: 20030101, end: 20050610

REACTIONS (4)
  - DIABETES MELLITUS [None]
  - DYSKINESIA [None]
  - THINKING ABNORMAL [None]
  - WEIGHT INCREASED [None]
